FAERS Safety Report 12557233 (Version 4)
Quarter: 2016Q3

REPORT INFORMATION
  Report Type: Spontaneous
  Country: FR (occurrence: FR)
  Receive Date: 20160714
  Receipt Date: 20160829
  Transmission Date: 20161109
  Serious: Yes (Hospitalization)
  Sender: FDA-Public Use
  Company Number: FR-DSJP-DSE-2016-124117

PATIENT

DRUGS (7)
  1. SOTALOL. [Concomitant]
     Active Substance: SOTALOL
     Dosage: 40 MG, BID
     Route: 048
     Dates: start: 20160621
  2. COLCHIMAX                          /01722001/ [Concomitant]
     Active Substance: COLCHICINE\OPIUM\TIEMONIUM METHYLSULFATE
     Indication: GOUT
     Dosage: UNK
     Route: 048
     Dates: start: 20160523, end: 20160621
  3. MEDIATENSYL                        /00631801/ [Concomitant]
     Active Substance: URAPIDIL
     Indication: PRODUCT USED FOR UNKNOWN INDICATION
     Dosage: 120 MG, QD
     Route: 048
  4. SOTALOL. [Concomitant]
     Active Substance: SOTALOL
     Indication: PRODUCT USED FOR UNKNOWN INDICATION
     Dosage: 160 MG, QD
     Route: 048
  5. ALTEIS 40 MG [Suspect]
     Active Substance: OLMESARTAN MEDOXOMIL
     Indication: HYPERTENSION
     Dosage: 40 MG, QD
     Route: 048
     Dates: end: 20160522
  6. ALTEISDUO 40 MG/ 12.5 MG [Suspect]
     Active Substance: HYDROCHLOROTHIAZIDE\OLMESARTAN MEDOXOMIL
     Indication: HYPERTENSION
     Dosage: 40 /12.5 MG, QD
     Route: 048
     Dates: start: 20160523, end: 20160621
  7. SOTALOL. [Concomitant]
     Active Substance: SOTALOL
     Route: 048

REACTIONS (3)
  - Diarrhoea [Recovered/Resolved]
  - Blood pressure systolic increased [Unknown]
  - Acute kidney injury [Recovered/Resolved]

NARRATIVE: CASE EVENT DATE: 201605
